FAERS Safety Report 6904319-1 (Version None)
Quarter: 2010Q3

REPORT INFORMATION
  Report Type: 
  Country: None (occurrence: None)
  Receive Date: 20100804
  Receipt Date: 20090421
  Transmission Date: 20110219
  Serious: No
  Sender: FDA-Public Use
  Company Number: US-PFIZER INC-2009157928

PATIENT
  Sex: Male

DRUGS (4)
  1. LYRICA [Suspect]
     Indication: NEUROPATHY PERIPHERAL
     Dosage: 50 MG, 1X/DAY
     Dates: start: 20090116
  2. COREG [Concomitant]
     Dosage: 12.5 MG, 2X/DAY
  3. DILTIAZEM [Concomitant]
     Dosage: 120 MG, ALTERNATE DAY
  4. WARFARIN [Concomitant]
     Dosage: 2.5 MG, UNK

REACTIONS (10)
  - ARRHYTHMIA [None]
  - DISORIENTATION [None]
  - DIZZINESS [None]
  - EPISTAXIS [None]
  - FATIGUE [None]
  - FEELING ABNORMAL [None]
  - GAIT DISTURBANCE [None]
  - LOCAL SWELLING [None]
  - NASAL OEDEMA [None]
  - VISION BLURRED [None]
